FAERS Safety Report 19032867 (Version 1)
Quarter: 2021Q1

REPORT INFORMATION
  Report Type: Spontaneous
  Country: US (occurrence: US)
  Receive Date: 20210319
  Receipt Date: 20210319
  Transmission Date: 20210420
  Serious: Yes (Other)
  Sender: FDA-Public Use
  Company Number: US-ALLERGAN-2111291US

PATIENT
  Sex: Female

DRUGS (3)
  1. UNKNOWN HEART MEDICATION [Concomitant]
     Active Substance: UNSPECIFIED INGREDIENT
     Dosage: UNK
  2. ALPHAGAN P [Suspect]
     Active Substance: BRIMONIDINE TARTRATE
     Indication: GLAUCOMA
     Dosage: UNK
     Route: 047
     Dates: start: 2001
  3. TIMOLOL UNK [Suspect]
     Active Substance: TIMOLOL
     Indication: GLAUCOMA
     Dosage: UNK
     Route: 047
     Dates: start: 2001

REACTIONS (4)
  - Glaucoma surgery [Unknown]
  - Glaucoma drainage device placement [Unknown]
  - Dry eye [Unknown]
  - Intraocular pressure increased [Unknown]

NARRATIVE: CASE EVENT DATE: 202102
